FAERS Safety Report 15429106 (Version 3)
Quarter: 2018Q4

REPORT INFORMATION
  Report Type: Report from Study
  Country: US (occurrence: US)
  Receive Date: 20180926
  Receipt Date: 20181107
  Transmission Date: 20190204
  Serious: Yes (Other)
  Sender: FDA-Public Use
  Company Number: US-ASTELLAS-2018US041469

PATIENT
  Age: 66 Year
  Sex: Male

DRUGS (4)
  1. ENZALUTAMIDE [Suspect]
     Active Substance: ENZALUTAMIDE
     Route: 065
     Dates: start: 201809, end: 201810
  2. ENZALUTAMIDE [Suspect]
     Active Substance: ENZALUTAMIDE
     Route: 065
     Dates: start: 20181025
  3. LUPRON [Concomitant]
     Active Substance: LEUPROLIDE ACETATE
     Indication: PRODUCT USED FOR UNKNOWN INDICATION
     Dosage: UNK UNK, UNKNOWN FREQ.
     Route: 065
  4. ENZALUTAMIDE [Suspect]
     Active Substance: ENZALUTAMIDE
     Indication: PROSTATE CANCER
     Route: 065
     Dates: start: 2017, end: 20180911

REACTIONS (10)
  - Swelling face [Recovered/Resolved]
  - Nocturnal dyspnoea [Unknown]
  - Headache [Recovered/Resolved]
  - Hot flush [Recovered/Resolved]
  - Dyspnoea exertional [Recovered/Resolved]
  - Thought blocking [Recovered/Resolved]
  - Dizziness [Recovered/Resolved]
  - Arthropod sting [Recovered/Resolved]
  - Loss of consciousness [Recovered/Resolved]
  - Vestibular migraine [Recovered/Resolved]

NARRATIVE: CASE EVENT DATE: 201809
